FAERS Safety Report 9468927 (Version 3)
Quarter: 2013Q3

REPORT INFORMATION
  Report Type: Spontaneous
  Country: US (occurrence: None)
  Receive Date: 20130813
  Receipt Date: 20130820
  Transmission Date: 20140515
  Serious: Yes (Other)
  Sender: FDA-Public Use
  Company Number: USA/USA/13/0033794

PATIENT
  Age: 58 Year
  Sex: Female
  Weight: 56.25 kg

DRUGS (7)
  1. LEVOFLOXACIN [Suspect]
     Indication: SINUSITIS
     Route: 048
     Dates: start: 201212
  2. LEVOFLOXACIN [Suspect]
     Indication: UPPER RESPIRATORY TRACT INFECTION
     Route: 048
     Dates: start: 201212
  3. LEVOFLOXACIN [Suspect]
     Indication: KIDNEY INFECTION
     Route: 048
     Dates: start: 201212
  4. DECONGESTANT [Concomitant]
  5. LIVALO [Concomitant]
  6. NEXIUM [Concomitant]
  7. PERCOCET [Concomitant]

REACTIONS (10)
  - Musculoskeletal pain [None]
  - Arthralgia [None]
  - Pain in extremity [None]
  - Tendonitis [None]
  - Photopsia [None]
  - Retinal haemorrhage [None]
  - Rotator cuff repair [None]
  - Retinal detachment [None]
  - Eye operation [None]
  - Retinal tear [None]
